FAERS Safety Report 7021573-9 (Version None)
Quarter: 2010Q3

REPORT INFORMATION
  Report Type: 
  Country: None (occurrence: None)
  Receive Date: 20100928
  Receipt Date: 20100914
  Transmission Date: 20110219
  Serious: Yes (Other)
  Sender: FDA-Public Use
  Company Number: 696180

PATIENT
  Age: 54 Year
  Sex: Male
  Weight: 95.25 kg

DRUGS (25)
  1. HEPARIN SODIUM [Suspect]
     Indication: CARDIOVASCULAR EVENT PROPHYLAXIS
     Dosage: 5000 UNITS, ONCE, INTRAVENOUS BOLUS ; 3000 UNITS, PRN , INTRAVENOUS BOLUS
     Route: 040
     Dates: start: 20080417, end: 20080417
  2. HEPARIN SODIUM [Suspect]
     Indication: CARDIOVASCULAR EVENT PROPHYLAXIS
     Dosage: 5000 UNITS, ONCE, INTRAVENOUS BOLUS ; 3000 UNITS, PRN , INTRAVENOUS BOLUS
     Route: 040
     Dates: start: 20080418, end: 20080418
  3. HEPARIN SODIUM [Suspect]
     Indication: PRODUCT USED FOR UNKNOWN INDICATION
     Dosage: 5000 UNITS, EVERY 8 HR SUBCUTANEOUS
     Route: 058
     Dates: start: 20080420, end: 20080421
  4. HEPARIN SODIUM [Suspect]
     Indication: INTRA-AORTIC BALLOON PLACEMENT
     Dosage: 5000 UNITS, ONCE, INTRAVENOUS ; 2600 UNITS, ONCE, INTRAVENOUS
     Route: 042
     Dates: start: 20080422, end: 20080422
  5. HEPARIN SODIUM [Suspect]
     Indication: INTRA-AORTIC BALLOON PLACEMENT
     Dosage: 5000 UNITS, ONCE, INTRAVENOUS ; 2600 UNITS, ONCE, INTRAVENOUS
     Route: 042
     Dates: start: 20080422, end: 20080422
  6. HEPARIN SODIUM [Suspect]
     Indication: THROMBOEMBOLECTOMY
     Dosage: 5000 UNITS, ONCE, INTRAVENOUS
     Route: 042
     Dates: start: 20080423, end: 20080423
  7. GLIPIZIDE [Concomitant]
  8. (METFORMIN) [Concomitant]
  9. KLOR-CON [Concomitant]
  10. (DIOVAN /01319601/) [Concomitant]
  11. FUROSEMIDE INJECTION, USP, 10 MG/ML (FUROSEMIDE) [Concomitant]
  12. (DIGITEK) [Concomitant]
  13. ASPIRIN [Concomitant]
  14. (ANCEF /00288502/) [Concomitant]
  15. (ATORVASTATIN) [Concomitant]
  16. CARVEDILOL [Concomitant]
  17. CHLORHEXIDINE GLUCONATE [Concomitant]
  18. (DOCUSATE) [Concomitant]
  19. AVAPRO [Concomitant]
  20. LISINOPRIL [Concomitant]
  21. MORPHINE SULFATE [Concomitant]
  22. MUPIROCIN [Concomitant]
  23. PANTOPRAZOLE [Concomitant]
  24. SODIUM CHLORIDE 0.9% INJECTION, USP (SODIUM CHLORIDE) [Concomitant]
  25. (PAPAVERINE) [Concomitant]

REACTIONS (10)
  - ANAEMIA [None]
  - ARTERIAL THROMBOSIS LIMB [None]
  - ASTHENIA [None]
  - CONSTIPATION [None]
  - HEADACHE [None]
  - LEUKOCYTOSIS [None]
  - PERIPHERAL ISCHAEMIA [None]
  - PYREXIA [None]
  - RENAL FAILURE [None]
  - VOMITING [None]
